FAERS Safety Report 16734709 (Version 1)
Quarter: 2019Q3

REPORT INFORMATION
  Report Type: Spontaneous
  Country: US (occurrence: US)
  Receive Date: 20190823
  Receipt Date: 20190823
  Transmission Date: 20191005
  Serious: No
  Sender: FDA-Public Use
  Company Number: US-ASTRAZENECA-2019SF19975

PATIENT
  Age: 63 Year
  Sex: Female
  Weight: 88.5 kg

DRUGS (1)
  1. NEXIUM 24HR [Suspect]
     Active Substance: ESOMEPRAZOLE MAGNESIUM
     Indication: GASTROINTESTINAL DISORDER
     Route: 048
     Dates: start: 20190818

REACTIONS (1)
  - Gluten sensitivity [Recovering/Resolving]

NARRATIVE: CASE EVENT DATE: 20190819
